FAERS Safety Report 9038273 (Version 1)
Quarter: 2013Q1

REPORT INFORMATION
  Report Type: Report from Study
  Country: DE (occurrence: DE)
  Receive Date: 20130129
  Receipt Date: 20130129
  Transmission Date: 20140127
  Serious: Yes (Life-Threatening, Hospitalization)
  Sender: FDA-Public Use
  Company Number: DE-TEVA-2011004999

PATIENT
  Age: 72 Year
  Sex: Male
  Weight: 75 kg

DRUGS (4)
  1. BENDAMUSTINE HCL [Suspect]
     Indication: NON-HODGKIN^S LYMPHOMA
     Route: 042
     Dates: start: 20110902
  2. RITUXIMAB [Suspect]
     Indication: NON-HODGKIN^S LYMPHOMA
     Dosage: 25 MILLIGRAM DAILY;
     Route: 042
     Dates: start: 20110901
  3. LYRICA [Suspect]
     Dates: start: 201108
  4. CARBAMAZEPIN [Concomitant]
     Dates: start: 2001

REACTIONS (1)
  - Skin haemorrhage [Unknown]
